FAERS Safety Report 15573680 (Version 4)
Quarter: 2018Q4

REPORT INFORMATION
  Report Type: Spontaneous
  Country: KR (occurrence: KR)
  Receive Date: 20181101
  Receipt Date: 20181113
  Transmission Date: 20190205
  Serious: Yes (Other)
  Sender: FDA-Public Use
  Company Number: KR-TEVA-2018-KR-967921

PATIENT
  Age: 55 Year
  Sex: Male

DRUGS (2)
  1. FENTORA [Suspect]
     Active Substance: FENTANYL CITRATE
     Dosage: 200 MICROGRAM DAILY; MORNING AND AFTERNOON
     Route: 065
     Dates: start: 20181018, end: 20181018
  2. FENTORA [Suspect]
     Active Substance: FENTANYL CITRATE
     Dosage: 100 MICROGRAM DAILY; IN THE AFTERNOON
     Route: 065
     Dates: start: 20181019, end: 20181019

REACTIONS (5)
  - Nausea [Unknown]
  - Drug titration error [Unknown]
  - Vomiting [Unknown]
  - Cerebral infarction [Unknown]
  - Headache [Unknown]

NARRATIVE: CASE EVENT DATE: 20181018
